FAERS Safety Report 8230588-4 (Version None)
Quarter: 2012Q1

REPORT INFORMATION
  Report Type: 
  Country: None (occurrence: None)
  Receive Date: 20120322
  Receipt Date: 20120229
  Transmission Date: 20120608
  Serious: Yes (Hospitalization)
  Sender: FDA-Public Use
  Company Number: 2011MZ000112

PATIENT
  Age: 35 Year
  Sex: Male

DRUGS (2)
  1. METHACRYLIC ACID (METHACRYLIC ACID) [Suspect]
     Indication: SCROTAL OPERATION
     Dosage: 1 DF;TOTAL;
     Dates: start: 20111206, end: 20111206
  2. BOTULINUM TOXIN TYPE A [Suspect]
     Indication: SCROTAL OPERATION
     Dosage: 100 IU; TOTAL;IM
     Route: 030
     Dates: start: 20111206, end: 20111206

REACTIONS (3)
  - INJECTION SITE NECROSIS [None]
  - INJECTION SITE PAIN [None]
  - INJECTION SITE INFECTION [None]
